FAERS Safety Report 14257814 (Version 1)
Quarter: 2017Q4

REPORT INFORMATION
  Report Type: Report from Study
  Country: GB (occurrence: GB)
  Receive Date: 20171207
  Receipt Date: 20171207
  Transmission Date: 20180321
  Serious: Yes (Death, Other)
  Sender: FDA-Public Use
  Company Number: GB-ROCHE-2034158

PATIENT

DRUGS (5)
  1. RITUXIMAB. [Suspect]
     Active Substance: RITUXIMAB
     Indication: RHEUMATOID ARTHRITIS
     Route: 042
  2. RITUXIMAB. [Suspect]
     Active Substance: RITUXIMAB
     Indication: PEMPHIGOID
  3. RITUXIMAB. [Suspect]
     Active Substance: RITUXIMAB
     Indication: MYOSITIS
  4. RITUXIMAB. [Suspect]
     Active Substance: RITUXIMAB
     Indication: SCLERODERMA
  5. RITUXIMAB. [Suspect]
     Active Substance: RITUXIMAB
     Indication: SYSTEMIC LUPUS ERYTHEMATOSUS

REACTIONS (5)
  - Infusion related reaction [Unknown]
  - Pancreatitis [Unknown]
  - Neoplasm malignant [Fatal]
  - Pneumonia [Fatal]
  - Infection [Unknown]
